FAERS Safety Report 10085961 (Version 2)
Quarter: 2014Q2

REPORT INFORMATION
  Report Type: Spontaneous
  Country: CA (occurrence: CA)
  Receive Date: 20140418
  Receipt Date: 20140514
  Transmission Date: 20141212
  Serious: Yes (Other)
  Sender: FDA-Public Use
  Company Number: CA-SA-2014SA048754

PATIENT
  Sex: Female
  Weight: 81 kg

DRUGS (4)
  1. TUBERSOL [Suspect]
     Indication: TUBERCULIN TEST
     Route: 023
     Dates: start: 20130424, end: 20130424
  2. VITAMIN B COMPLEX [Concomitant]
     Route: 065
  3. VITAMIN C [Concomitant]
     Route: 065
  4. VITAMIN D [Concomitant]
     Route: 065

REACTIONS (2)
  - Throat tightness [Unknown]
  - Dyspnoea [Unknown]
